FAERS Safety Report 4580137-7 (Version None)
Quarter: 2005Q1

REPORT INFORMATION
  Report Type: 
  Country: None (occurrence: None)
  Receive Date: 20050210
  Receipt Date: 20050204
  Transmission Date: 20050727
  Serious: Yes (Life-Threatening)
  Sender: FDA-Public Use
  Company Number: 2005AP00973

PATIENT
  Age: 52 Year
  Sex: Female

DRUGS (2)
  1. PROPOFOL [Suspect]
     Dosage: 1 DAILY
     Dates: start: 20031203, end: 20031207
  2. ROCURONIUM BROMIDE [Suspect]
     Dosage: 1 DAILY
     Dates: start: 20031203, end: 20031203

REACTIONS (6)
  - ANAPHYLACTIC REACTION [None]
  - HYPOTENSION [None]
  - PCO2 DECREASED [None]
  - PILOERECTION [None]
  - RASH [None]
  - TACHYCARDIA [None]
